FAERS Safety Report 25688899 (Version 1)
Quarter: 2025Q3

REPORT INFORMATION
  Report Type: Report from Study
  Country: CA (occurrence: CA)
  Receive Date: 20250818
  Receipt Date: 20250818
  Transmission Date: 20251020
  Serious: Yes (Other)
  Sender: AMGEN
  Company Number: CA-002147023-NVSC2025CA098267

PATIENT
  Sex: Female

DRUGS (2)
  1. AIMOVIG [Suspect]
     Active Substance: ERENUMAB-AOOE
     Indication: Migraine
     Route: 065
     Dates: start: 20231112
  2. AIMOVIG [Suspect]
     Active Substance: ERENUMAB-AOOE
     Dosage: 70 MG, QMO
     Route: 058
     Dates: end: 202506

REACTIONS (5)
  - Pulmonary hypertension [Unknown]
  - Therapeutic response shortened [Unknown]
  - Migraine [Unknown]
  - Liver disorder [Unknown]
  - Renal disorder [Unknown]
